FAERS Safety Report 4726022-9 (Version None)
Quarter: 2005Q3

REPORT INFORMATION
  Report Type: 
  Country: None (occurrence: None)
  Receive Date: 20050726
  Receipt Date: 20050726
  Transmission Date: 20060218
  Serious: No
  Sender: FDA-Public Use
  Company Number: None

PATIENT
  Sex: Female
  Weight: 40.8237 kg

DRUGS (4)
  1. TRAZADONE 50MG WATSON LABS [Suspect]
     Indication: INSOMNIA
     Dosage: 2-3 TABS HS ORAL
     Route: 048
     Dates: start: 20050622, end: 20050713
  2. BUSPIRONE HCL [Suspect]
     Indication: ANXIETY
     Dosage: 1TAB BID ORAL
     Route: 048
     Dates: start: 20050622, end: 20050725
  3. PHENERGAN [Concomitant]
  4. ANTIVERT [Concomitant]

REACTIONS (1)
  - SEROTONIN SYNDROME [None]
